FAERS Safety Report 8544842-X (Version None)
Quarter: 2012Q3

REPORT INFORMATION
  Report Type: 
  Country: None (occurrence: None)
  Receive Date: 20120727
  Receipt Date: 20120724
  Transmission Date: 20120928
  Serious: No
  Sender: FDA-Public Use
  Company Number: US-PFIZER INC-2012179269

PATIENT

DRUGS (1)
  1. PRISTIQ [Suspect]
     Dosage: UNK, EVERY OTHER DAY

REACTIONS (4)
  - WITHDRAWAL SYNDROME [None]
  - PALPITATIONS [None]
  - CHEST DISCOMFORT [None]
  - DYSPNOEA [None]
